FAERS Safety Report 5093359-6 (Version None)
Quarter: 2006Q3

REPORT INFORMATION
  Report Type: 
  Country: None (occurrence: None)
  Receive Date: 20060828
  Receipt Date: 20060816
  Transmission Date: 20061208
  Serious: Yes (Hospitalization)
  Sender: FDA-Public Use
  Company Number: 2006102160

PATIENT
  Age: 78 Year
  Sex: Male

DRUGS (4)
  1. CELEBREX [Suspect]
     Indication: ARTHRALGIA
     Dosage: ORAL
     Route: 048
     Dates: start: 20051223, end: 20060103
  2. ACETAMINOPHEN W/ PROPOXYPHENE HCL [Suspect]
     Indication: ARTHRALGIA
     Dosage: ORAL
     Route: 048
     Dates: start: 20051223, end: 20060103
  3. CIPROFLOXACIN [Suspect]
     Indication: PROSTATITIS
     Dosage: ORAL
     Route: 048
     Dates: start: 20051229, end: 20060103
  4. ROCEPHIN [Suspect]
     Indication: PROSTATITIS
     Dosage: INTRAVENOUS
     Route: 042
     Dates: start: 20051223, end: 20051229

REACTIONS (6)
  - DERMATITIS [None]
  - EOSINOPHILIA [None]
  - ERYTHEMA MULTIFORME [None]
  - PROSTATIC SPECIFIC ANTIGEN INCREASED [None]
  - RASH ERYTHEMATOUS [None]
  - VASCULAR PURPURA [None]
